FAERS Safety Report 7361022-4 (Version None)
Quarter: 2011Q1

REPORT INFORMATION
  Report Type: 
  Country: None (occurrence: None)
  Receive Date: 20110318
  Receipt Date: 20110316
  Transmission Date: 20110831
  Serious: Yes (Other)
  Sender: FDA-Public Use
  Company Number: FR-SANOFI-AVENTIS-200713527FR

PATIENT
  Sex: Female

DRUGS (9)
  1. MYOLASTAN [Suspect]
     Dosage: DOSE UNIT: 50 MG
     Route: 048
  2. BACLOFEN [Suspect]
     Dosage: DOSE UNIT: 10 MG
     Route: 048
  3. AMARYL [Suspect]
     Route: 048
  4. GLUCOPHAGE [Suspect]
     Dosage: DOSE UNIT: 1 G
     Route: 048
  5. ZOCOR [Suspect]
     Dosage: DOSE UNIT: 20 MG
     Route: 048
  6. ACUITEL [Suspect]
     Dosage: DOSE UNIT: 20 MG
     Route: 048
  7. AMPECYCLAL [Suspect]
     Dosage: DOSE UNIT: 300 MG
     Route: 048
  8. PIOGLITAZONE [Suspect]
     Dosage: DOSE UNIT: 30 MG
     Route: 048
     Dates: start: 20060201, end: 20071001
  9. INDAPAMIDE [Suspect]
     Dosage: DOSE UNIT: 1.5 MG
     Route: 048

REACTIONS (2)
  - TIBIA FRACTURE [None]
  - PATHOLOGICAL FRACTURE [None]
